FAERS Safety Report 4987583-8 (Version None)
Quarter: 2006Q2

REPORT INFORMATION
  Report Type: 
  Country: None (occurrence: None)
  Receive Date: 20060501
  Receipt Date: 20060412
  Transmission Date: 20061013
  Serious: Yes (Death, Other)
  Sender: FDA-Public Use
  Company Number: GB-NOVOPROD-252441

PATIENT

DRUGS (7)
  1. PREDNISOLONE [Concomitant]
     Dates: start: 20031122
  2. NOVOSEVEN [Suspect]
     Indication: ACQUIRED HAEMOPHILIA
     Dosage: 90 UG/KG
     Dates: start: 20031023, end: 20031023
  3. NOVOSEVEN [Suspect]
     Dosage: 120  UG/KG
     Dates: start: 20031023, end: 20031023
  4. NOVOSEVEN [Suspect]
     Dosage: 90  UG/KG
     Dates: start: 20031109, end: 20031109
  5. NOVOSEVEN [Suspect]
     Dosage: 90  UG/KG
     Dates: start: 20031110, end: 20031110
  6. NOVOSEVEN [Suspect]
     Dosage: 120  UG/KG
     Dates: start: 20031111, end: 20031111
  7. NOVOSEVEN [Suspect]
     Dosage: 120  UG/KG
     Dates: start: 20031112, end: 20031112

REACTIONS (3)
  - INFECTION IN AN IMMUNOCOMPROMISED HOST [None]
  - INJURY [None]
  - RETROPERITONEAL HAEMORRHAGE [None]
